FAERS Safety Report 20664554 (Version 1)
Quarter: 2022Q2

REPORT INFORMATION
  Report Type: Spontaneous
  Country: CN (occurrence: CN)
  Receive Date: 20220401
  Receipt Date: 20220401
  Transmission Date: 20220720
  Serious: Yes (Other)
  Sender: FDA-Public Use
  Company Number: CN-PFIZER INC-202200458217

PATIENT
  Age: 65 Year
  Sex: Male

DRUGS (2)
  1. ZYVOX [Suspect]
     Active Substance: LINEZOLID
     Indication: Pneumonia
     Dosage: 0.6 G, TWICE A DAY
     Route: 041
     Dates: start: 20220313, end: 20220314
  2. ZYVOX [Suspect]
     Active Substance: LINEZOLID
     Indication: Enterococcal infection

REACTIONS (1)
  - Delirium [Recovering/Resolving]

NARRATIVE: CASE EVENT DATE: 20220313
